FAERS Safety Report 5598835-5 (Version None)
Quarter: 2008Q1

REPORT INFORMATION
  Report Type: 
  Country: None (occurrence: None)
  Receive Date: 20080122
  Receipt Date: 20080110
  Transmission Date: 20080703
  Serious: Yes (Hospitalization)
  Sender: FDA-Public Use
  Company Number: DE-BRISTOL-MYERS SQUIBB COMPANY-14041081

PATIENT
  Age: 75 Year
  Sex: Male

DRUGS (3)
  1. CETUXIMAB [Suspect]
     Indication: NON-SMALL CELL LUNG CANCER
     Dosage: 2 MG/ML. RECENT INFUSION 2JAN08.67TH INFUSION
     Route: 040
     Dates: start: 20060904
  2. CARBOPLATIN [Suspect]
     Indication: NON-SMALL CELL LUNG CANCER
     Dosage: LAST INFUSION 21NOV06. 4TH INFUSION
     Route: 042
     Dates: start: 20060904
  3. GEMCITABINE [Suspect]
     Indication: NON-SMALL CELL LUNG CANCER
     Dosage: LAST INFUSION 21NOV06. 5TH INFUSION
     Route: 042
     Dates: start: 20060904

REACTIONS (1)
  - TRANSIENT ISCHAEMIC ATTACK [None]
